FAERS Safety Report 5404968-6 (Version None)
Quarter: 2007Q3

REPORT INFORMATION
  Report Type: 
  Country: None (occurrence: None)
  Receive Date: 20070803
  Receipt Date: 20070612
  Transmission Date: 20080115
  Serious: Yes (Other)
  Sender: FDA-Public Use
  Company Number: US-PURDUE-USA_2007_0028027

PATIENT
  Sex: Female
  Weight: 64 kg

DRUGS (3)
  1. OXYCONTIN [Suspect]
     Indication: BACK PAIN
     Dosage: UNK MG, SEE TEXT
     Dates: start: 19990601, end: 20010401
  2. PAXIL [Concomitant]
     Dosage: 40 MG, DAILY
  3. FLEXERIL [Concomitant]
     Dosage: 20 MG, TID

REACTIONS (19)
  - ABDOMINAL PAIN UPPER [None]
  - ARRHYTHMIA [None]
  - COMMUNICATION DISORDER [None]
  - DEPRESSION [None]
  - DRUG DEPENDENCE [None]
  - DRUG TOLERANCE [None]
  - DRUG WITHDRAWAL SYNDROME [None]
  - HEART RATE INCREASED [None]
  - HYPERHIDROSIS [None]
  - MUSCLE SPASMS [None]
  - NIGHT SWEATS [None]
  - PAIN [None]
  - PANIC ATTACK [None]
  - SEDATION [None]
  - SOCIAL AVOIDANT BEHAVIOUR [None]
  - SOMNOLENCE [None]
  - SUICIDAL IDEATION [None]
  - SUPRAVENTRICULAR TACHYCARDIA [None]
  - VOMITING [None]
